FAERS Safety Report 4691505-7 (Version None)
Quarter: 2005Q2

REPORT INFORMATION
  Report Type: 
  Country: None (occurrence: None)
  Receive Date: 20050608
  Receipt Date: 20040721
  Transmission Date: 20051028
  Serious: Yes (Other)
  Sender: FDA-Public Use
  Company Number: 375051

PATIENT
  Age: 15 Year
  Sex: Female
  Weight: 50.8 kg

DRUGS (1)
  1. ACCUTANE [Suspect]
     Indication: ACNE
     Dosage: 20 MG 2 PER DAY ORAL
     Route: 048
     Dates: start: 20040424, end: 20040624

REACTIONS (1)
  - BLOOD CREATINE PHOSPHOKINASE INCREASED [None]
